FAERS Safety Report 9676012 (Version 1)
Quarter: 2013Q4

REPORT INFORMATION
  Report Type: Report from Study
  Country: CA (occurrence: CA)
  Receive Date: 20131107
  Receipt Date: 20131107
  Transmission Date: 20140711
  Serious: Yes (Hospitalization)
  Sender: FDA-Public Use
  Company Number: CA-UCBSA-102307

PATIENT
  Age: 62 Year
  Sex: Female
  Weight: 75 kg

DRUGS (8)
  1. CIMZIA [Suspect]
     Indication: RHEUMATOID ARTHRITIS
     Route: 058
     Dates: start: 20110916, end: 20130927
  2. CIMZIA [Suspect]
     Indication: RHEUMATOID ARTHRITIS
     Dosage: Q 2 WKS X 3
     Route: 058
     Dates: start: 20110722, end: 20110819
  3. AZATHIAPRINE [Concomitant]
     Indication: RHEUMATOID ARTHRITIS
     Route: 048
     Dates: end: 20130927
  4. PLAQUENIL [Concomitant]
     Indication: RHEUMATOID ARTHRITIS
     Route: 048
  5. VOLTAREN [Concomitant]
     Indication: ANTIINFLAMMATORY THERAPY
     Route: 048
     Dates: end: 20130927
  6. B12 [Concomitant]
     Indication: PERNICIOUS ANAEMIA
     Route: 048
  7. FRAGMIN [Concomitant]
     Dosage: DAILY DOSE: 5000 IU
     Route: 058
  8. PERCOCETTE [Concomitant]
     Dosage: DOSE: 1 TABLET Q 4 HR PRN

REACTIONS (2)
  - Hip fracture [Recovering/Resolving]
  - Fall [Unknown]
